FAERS Safety Report 4619918-X (Version None)
Quarter: 2005Q1

REPORT INFORMATION
  Report Type: 
  Country: None (occurrence: None)
  Receive Date: 20050324
  Receipt Date: 20050318
  Transmission Date: 20050727
  Serious: Yes (Other)
  Sender: FDA-Public Use
  Company Number: 200410927BVD

PATIENT
  Age: 76 Year
  Sex: Female
  Weight: 51 kg

DRUGS (4)
  1. AVELOX [Suspect]
     Indication: PNEUMONIA
     Dosage: 600 MG, TOTAL DAILY, ORAL
     Route: 048
     Dates: start: 20040820, end: 20040823
  2. IMUREX [Concomitant]
  3. CONCOR [Concomitant]
  4. DECORTIN [Concomitant]

REACTIONS (1)
  - DERMATITIS EXFOLIATIVE [None]
